FAERS Safety Report 4832575-2 (Version None)
Quarter: 2005Q4

REPORT INFORMATION
  Report Type: 
  Country: None (occurrence: None)
  Receive Date: 20051117
  Receipt Date: 20050829
  Transmission Date: 20060501
  Serious: Yes (Other)
  Sender: FDA-Public Use
  Company Number: 2005BI016373

PATIENT
  Age: 72 Year
  Sex: Male

DRUGS (9)
  1. AMEVIVE [Suspect]
     Indication: PSORIASIS
     Dosage: 15 MG;QW;IM
     Route: 030
     Dates: start: 20030528, end: 20030812
  2. AMEVIVE [Suspect]
     Indication: PSORIASIS
     Dosage: 15 MG;QW;IM
     Route: 030
     Dates: start: 20031105, end: 20040218
  3. AMEVIVE [Suspect]
     Indication: PSORIASIS
     Dosage: 15 MG;QW;IM
     Route: 030
     Dates: start: 20040601, end: 20040914
  4. AMEVIVE [Suspect]
     Indication: PSORIASIS
     Dosage: 15 MG;QW;IM
     Route: 030
     Dates: start: 20050610, end: 20050805
  5. NEURONTIN [Concomitant]
  6. TERAZOSIN HCL [Concomitant]
  7. ALTACE [Concomitant]
  8. DOVENEX [Concomitant]
  9. ULTRAVATE [Concomitant]

REACTIONS (11)
  - BLOOD ALKALINE PHOSPHATASE INCREASED [None]
  - BLOOD LACTATE DEHYDROGENASE INCREASED [None]
  - GASTROINTESTINAL CARCINOMA [None]
  - LUNG ADENOCARCINOMA METASTATIC [None]
  - METASTASES TO LIVER [None]
  - METASTASES TO LUNG [None]
  - METASTASES TO LYMPH NODES [None]
  - PANCREATIC CARCINOMA [None]
  - PANCREATIC NEOPLASM [None]
  - PLATELET COUNT DECREASED [None]
  - WHITE BLOOD CELL COUNT DECREASED [None]
